FAERS Safety Report 9036199 (Version 1)
Quarter: 2013Q1

REPORT INFORMATION
  Report Type: Report from Study
  Country: US (occurrence: US)
  Receive Date: 20130129
  Receipt Date: 20130129
  Transmission Date: 20140127
  Serious: No
  Sender: FDA-Public Use
  Company Number: US-ABBOTT-12P-163-0920633-00

PATIENT
  Age: 67 Year
  Sex: Male

DRUGS (8)
  1. HUMIRA 40 MG/0.8 ML PEN [Suspect]
     Indication: CROHN^S DISEASE
     Dates: start: 20120213, end: 20120213
  2. HUMIRA 40 MG/0.8 ML PEN [Suspect]
  3. PREDNISONE [Suspect]
     Indication: PRODUCT USED FOR UNKNOWN INDICATION
     Dates: start: 20120319
  4. PREDNISONE [Suspect]
     Dosage: WEANED DOWN IN 5MG INCRIMENTS TO 5MG
     Dates: end: 20120319
  5. CALCIUM [Concomitant]
     Indication: PRODUCT USED FOR UNKNOWN INDICATION
  6. LIALDA [Concomitant]
     Indication: PRODUCT USED FOR UNKNOWN INDICATION
  7. IRON [Concomitant]
     Indication: PRODUCT USED FOR UNKNOWN INDICATION
  8. COUMADIN [Concomitant]
     Indication: THROMBOSIS
     Dates: start: 20110211

REACTIONS (7)
  - Diarrhoea [Not Recovered/Not Resolved]
  - Injection site vesicles [Recovered/Resolved]
  - Drug ineffective [Not Recovered/Not Resolved]
  - Crohn^s disease [Not Recovered/Not Resolved]
  - Diarrhoea [Not Recovered/Not Resolved]
  - Device malfunction [Unknown]
  - Drug dose omission [Unknown]
